FAERS Safety Report 15664566 (Version 1)
Quarter: 2018Q4

REPORT INFORMATION
  Report Type: Spontaneous
  Country: US (occurrence: US)
  Receive Date: 20181128
  Receipt Date: 20181128
  Transmission Date: 20190205
  Serious: No
  Sender: FDA-Public Use
  Company Number: US-KERYX BIOPHARMACEUTICALS INC.-2018US003875

PATIENT
  Age: 84 Year
  Sex: Female

DRUGS (3)
  1. IRON [Concomitant]
     Active Substance: IRON
     Dosage: DURING DIALYSIS
     Route: 042
  2. AURYXIA [Suspect]
     Active Substance: TETRAFERRIC TRICITRATE DECAHYDRATE
     Dosage: 3 G (3 TABLETS), TID WITH MEALS
  3. AURYXIA [Suspect]
     Active Substance: TETRAFERRIC TRICITRATE DECAHYDRATE
     Indication: PRODUCT USED FOR UNKNOWN INDICATION
     Dosage: 2 G (2 TABLETS), TID WITH MEALS
     Route: 048

REACTIONS (4)
  - Haematochezia [Recovered/Resolved]
  - Dizziness [Unknown]
  - Intentional product misuse [Unknown]
  - Diarrhoea [Unknown]
